FAERS Safety Report 10145545 (Version 1)
Quarter: 2014Q2

REPORT INFORMATION
  Report Type: Spontaneous
  Country: IL (occurrence: IL)
  Receive Date: 20140501
  Receipt Date: 20140501
  Transmission Date: 20141212
  Serious: Yes (Hospitalization, Other)
  Sender: FDA-Public Use
  Company Number: IL-BRISTOL-MYERS SQUIBB COMPANY-20666236

PATIENT
  Age: 79 Year
  Sex: Female
  Weight: 78 kg

DRUGS (14)
  1. COUMADIN [Suspect]
     Indication: ATRIAL FIBRILLATION
     Dosage: INTRPTD ON 10DEC2013, 2.5 MG?RESTRTD ON 11DEC13-15DEC13, 2.5 MG?RESTRD ON 16DEC13, 5MG, 2.5MG
     Route: 048
     Dates: start: 200807
  2. RANOLAZINE HCL [Interacting]
     Indication: ATRIAL FIBRILLATION
     Route: 048
     Dates: start: 20131128
  3. DRONEDARONE [Interacting]
     Indication: ATRIAL FIBRILLATION
     Route: 048
     Dates: start: 20131128
  4. CARDIOLOC [Concomitant]
     Dates: start: 201304
  5. RECITAL [Concomitant]
     Dates: start: 20120101
  6. CONTROLOC [Concomitant]
     Dates: start: 20130901
  7. ENALAPRIL [Concomitant]
     Dates: start: 20090306
  8. FUSID [Concomitant]
     Dates: start: 2013
  9. SIMVACOR [Concomitant]
     Dates: start: 2011
  10. CIPRAMIL [Concomitant]
  11. VITAMIN D3 [Concomitant]
  12. LORIVAN [Concomitant]
  13. CIPRAMIL [Concomitant]
  14. VITAMIN D [Concomitant]

REACTIONS (3)
  - International normalised ratio increased [Recovered/Resolved]
  - Overdose [Unknown]
  - Drug interaction [Unknown]
